FAERS Safety Report 21109156 (Version 1)
Quarter: 2022Q3

REPORT INFORMATION
  Report Type: Spontaneous
  Country: US (occurrence: US)
  Receive Date: 20220721
  Receipt Date: 20220721
  Transmission Date: 20221027
  Serious: No
  Sender: FDA-Public Use
  Company Number: US-ENDO PHARMACEUTICALS INC-2022-004024

PATIENT
  Sex: Female
  Weight: 68.027 kg

DRUGS (3)
  1. QWO [Suspect]
     Active Substance: COLLAGENASE CLOSTRIDIUM HISTOLYTICUM-AAES
     Indication: Product used for unknown indication
     Dosage: UNK UNKNOWN, UNKNOWN (TREATMENT ONE-7 INJECTION ON EACH SIDE TOTAL OF 14 INJECTION)
     Route: 065
     Dates: start: 2021
  2. QWO [Suspect]
     Active Substance: COLLAGENASE CLOSTRIDIUM HISTOLYTICUM-AAES
     Dosage: UNK UNKNOWN, UNKNOWN (TREATMENT TWO-7 INJECTION ON EACH SIDE TOTAL OF 14 INJECTION)
     Route: 065
     Dates: start: 2021
  3. QWO [Suspect]
     Active Substance: COLLAGENASE CLOSTRIDIUM HISTOLYTICUM-AAES
     Dosage: UNK UNKNOWN, UNKNOWN (TREATMENT THREE-7 INJECTION ON EACH SIDE TOTAL OF 14 INJECTION)
     Route: 065
     Dates: start: 2021

REACTIONS (2)
  - Contusion [Not Recovered/Not Resolved]
  - Off label use [Unknown]

NARRATIVE: CASE EVENT DATE: 20210101
